FAERS Safety Report 4394902-2 (Version None)
Quarter: 2004Q3

REPORT INFORMATION
  Report Type: 
  Country: None (occurrence: None)
  Receive Date: 20040706
  Receipt Date: 20040623
  Transmission Date: 20050211
  Serious: Yes (Other)
  Sender: FDA-Public Use
  Company Number: 2004042400

PATIENT
  Sex: Male

DRUGS (1)
  1. NEURONTIN [Suspect]
     Indication: BONE DISORDER
     Dosage: 200 MG (100 MG, 2 IN 1 D), ORAL
     Route: 048

REACTIONS (3)
  - BREAST DISORDER MALE [None]
  - NIPPLE NEOPLASM [None]
  - REFUSAL OF TREATMENT BY PATIENT [None]
